FAERS Safety Report 25723261 (Version 2)
Quarter: 2025Q3

REPORT INFORMATION
  Report Type: Spontaneous
  Country: US (occurrence: US)
  Receive Date: 20250825
  Receipt Date: 20250828
  Transmission Date: 20251020
  Serious: Yes (Other)
  Sender: PFIZER
  Company Number: US-PFIZER INC-PV202500101908

PATIENT
  Age: 59 Year
  Sex: Male

DRUGS (1)
  1. LORBRENA [Suspect]
     Active Substance: LORLATINIB
     Indication: Non-small cell lung cancer
     Dates: start: 201701, end: 202401

REACTIONS (19)
  - Neuropathy peripheral [Not Recovered/Not Resolved]
  - Mental impairment [Unknown]
  - Hallucination [Unknown]
  - Suicidal behaviour [Unknown]
  - Therapeutic response unexpected [Unknown]
  - Blood cholesterol increased [Not Recovered/Not Resolved]
  - Mania [Not Recovered/Not Resolved]
  - Memory impairment [Not Recovered/Not Resolved]
  - Oedema peripheral [Not Recovered/Not Resolved]
  - Amnesia [Not Recovered/Not Resolved]
  - Cognitive disorder [Unknown]
  - Malaise [Unknown]
  - Mental disorder [Unknown]
  - Euphoric mood [Unknown]
  - Repetitive speech [Unknown]
  - Logorrhoea [Unknown]
  - Thinking abnormal [Unknown]
  - Mood altered [Unknown]
  - Energy increased [Unknown]

NARRATIVE: CASE EVENT DATE: 20170101
